FAERS Safety Report 4463687-3 (Version None)
Quarter: 2004Q3

REPORT INFORMATION
  Report Type: 
  Country: None (occurrence: None)
  Receive Date: 20040929
  Receipt Date: 20040913
  Transmission Date: 20050211
  Serious: Yes (Hospitalization, Other)
  Sender: FDA-Public Use
  Company Number: JP_040904431

PATIENT
  Age: 50 Year
  Sex: Female
  Weight: 30 kg

DRUGS (7)
  1. ZYPREXA [Suspect]
     Indication: SCHIZOPHRENIA
     Dosage: 15 MG DAY
     Route: 048
     Dates: start: 20040426
  2. GASMOTIN (MOSAPRIDE CITRATE) [Concomitant]
  3. MUCOSTA (REBAMIPIDE) [Concomitant]
  4. LAC B (LACTOBACILLIS BIFIDUS, LYPHOLIZED) [Concomitant]
  5. BERIZYM [Concomitant]
  6. PRAVASTATIN SODIUM [Concomitant]
  7. NICOTINAMIDE [Concomitant]

REACTIONS (12)
  - ALANINE AMINOTRANSFERASE INCREASED [None]
  - ASPARTATE AMINOTRANSFERASE INCREASED [None]
  - BLOOD CREATINE PHOSPHOKINASE INCREASED [None]
  - CACHEXIA [None]
  - CONDITION AGGRAVATED [None]
  - EATING DISORDER [None]
  - FEMUR FRACTURE [None]
  - LIVER DISORDER [None]
  - MALNUTRITION [None]
  - ORTHOSTATIC HYPOTENSION [None]
  - PANCYTOPENIA [None]
  - PROTEIN TOTAL DECREASED [None]
